FAERS Safety Report 10526628 (Version 1)
Quarter: 2014Q4

REPORT INFORMATION
  Report Type: Report from Study
  Country: US (occurrence: US)
  Receive Date: 20141020
  Receipt Date: 20141020
  Transmission Date: 20150528
  Serious: Yes (Hospitalization)
  Sender: FDA-Public Use
  Company Number: US-BIOGENIDEC-2014BI106515

PATIENT
  Age: 66 Year
  Sex: Male

DRUGS (3)
  1. BACLOFEN. [Concomitant]
     Active Substance: BACLOFEN
  2. AVONEX [Suspect]
     Active Substance: INTERFERON BETA-1A
     Indication: MULTIPLE SCLEROSIS
     Route: 030
  3. AVONEX [Suspect]
     Active Substance: INTERFERON BETA-1A
     Indication: MULTIPLE SCLEROSIS
     Route: 030
     Dates: start: 2007

REACTIONS (4)
  - Renal failure [Recovered/Resolved]
  - Adverse drug reaction [Recovered/Resolved]
  - Colostomy [Unknown]
  - Decubitus ulcer [Not Recovered/Not Resolved]

NARRATIVE: CASE EVENT DATE: 201409
